FAERS Safety Report 4279024-3 (Version None)
Quarter: 2004Q1

REPORT INFORMATION
  Report Type: 
  Country: None (occurrence: None)
  Receive Date: 20040126
  Receipt Date: 20030110
  Transmission Date: 20041129
  Serious: Yes (Hospitalization, Other)
  Sender: FDA-Public Use
  Company Number: PHHO2003DE00714

PATIENT
  Age: 21 Month
  Sex: Male
  Weight: 12 kg

DRUGS (5)
  1. SIMULECT [Suspect]
     Indication: LIVER TRANSPLANT
     Dosage: 10 MG, (DAY 0)
     Route: 042
     Dates: start: 20020531, end: 20020531
  2. SIMULECT [Suspect]
     Dosage: 10 MG, (DAY 4)
     Route: 042
     Dates: start: 20020604, end: 20020604
  3. NEORAL [Suspect]
     Indication: LIVER TRANSPLANT
     Dosage: 40 MG, BID
     Route: 048
     Dates: start: 20020531, end: 20021212
  4. PREDNISONE [Concomitant]
     Indication: LIVER TRANSPLANT
     Dosage: 1 MG, Q48H
     Route: 048
  5. PREDNISONE [Concomitant]
     Dosage: 1 MG, QD
     Route: 048
     Dates: start: 20020531

REACTIONS (17)
  - ARTERIOPATHIC DISEASE [None]
  - BILE DUCT OBSTRUCTION [None]
  - CHOLANGITIS ACUTE [None]
  - CHOLANGITIS CHRONIC [None]
  - CHOLESTASIS [None]
  - DRUG INEFFECTIVE [None]
  - EPSTEIN-BARR VIRUS INFECTION [None]
  - FIBROSIS [None]
  - HEPATIC ENZYME INCREASED [None]
  - HEPATIC FAILURE [None]
  - HEPATIC FIBROSIS [None]
  - HEPATIC NECROSIS [None]
  - LIVER TRANSPLANT [None]
  - LIVER TRANSPLANT REJECTION [None]
  - LYMPHOCYTIC INFILTRATION [None]
  - NECROSIS [None]
  - SURGERY [None]
